FAERS Safety Report 13569117 (Version 1)
Quarter: 2017Q2

REPORT INFORMATION
  Report Type: Spontaneous
  Country: CH (occurrence: CH)
  Receive Date: 20170522
  Receipt Date: 20170522
  Transmission Date: 20170830
  Serious: Yes (Other)
  Sender: FDA-Public Use
  Company Number: CH-NOVOPROD-544908

PATIENT
  Age: 14 Year
  Sex: Female

DRUGS (2)
  1. NORDITROPIN [Suspect]
     Active Substance: SOMATROPIN
     Indication: GROWTH HORMONE DEFICIENCY
     Dosage: 0.9 MG, QD (21.17MCG/KGKG/D)
     Route: 058
     Dates: start: 201311
  2. NORDITROPIN [Suspect]
     Active Substance: SOMATROPIN
     Dosage: 1.1 MG, QD
     Route: 058
     Dates: start: 201502

REACTIONS (4)
  - Malignant melanoma stage I [Unknown]
  - Skin neoplasm excision [Unknown]
  - Superficial spreading melanoma stage I [Unknown]
  - Naevoid melanoma [Unknown]

NARRATIVE: CASE EVENT DATE: 201704
